FAERS Safety Report 9848181 (Version 1)
Quarter: 2014Q1

REPORT INFORMATION
  Report Type: Spontaneous
  Country: US (occurrence: US)
  Receive Date: 20140128
  Receipt Date: 20140128
  Transmission Date: 20141002
  Serious: No
  Sender: FDA-Public Use
  Company Number: US-PFIZER INC-2014021983

PATIENT
  Age: 45 Year
  Sex: Female
  Weight: 109 kg

DRUGS (5)
  1. GABAPENTIN [Suspect]
     Indication: NEURALGIA
     Dosage: UNK, 2X/DAY
     Dates: start: 20131201, end: 20131224
  2. NAPROXEN SODIUM [Concomitant]
     Dosage: UNK, 3X/DAY
  3. NAPROXEN SODIUM [Concomitant]
     Dosage: UNK, 1X/DAY
  4. LEVOTHYROXINE [Concomitant]
     Indication: THYROID DISORDER
     Dosage: 0.5 UG, DAILY
  5. LISINOPRIL [Concomitant]
     Indication: BLOOD PRESSURE ABNORMAL
     Dosage: 10 MG, DAILY

REACTIONS (2)
  - Off label use [Unknown]
  - Neuralgia [Unknown]
